FAERS Safety Report 8417642-9 (Version None)
Quarter: 2012Q2

REPORT INFORMATION
  Report Type: 
  Country: None (occurrence: None)
  Receive Date: 20120606
  Receipt Date: 20120530
  Transmission Date: 20120825
  Serious: Yes (Congenital Anomaly, Other)
  Sender: FDA-Public Use
  Company Number: US-RB-039064-12

PATIENT
  Sex: Male
  Weight: 3.2 kg

DRUGS (3)
  1. SUBOXONE [Suspect]
     Indication: DRUG DEPENDENCE
     Dosage: 8 MG DAILY
     Route: 064
     Dates: start: 20110301, end: 20110601
  2. NICOTINE [Suspect]
     Indication: NICOTINE DEPENDENCE
     Dosage: DOSING DETAILS NOT PROVIDED
     Route: 064
     Dates: start: 20110301, end: 20111215
  3. BUPRENORPHINE [Suspect]
     Indication: DRUG DEPENDENCE
     Dosage: 16 MG DAILY
     Route: 064
     Dates: start: 20110601, end: 20111215

REACTIONS (3)
  - FEEDING DISORDER NEONATAL [None]
  - CLEFT PALATE [None]
  - FOETAL EXPOSURE DURING PREGNANCY [None]
